FAERS Safety Report 5226340-4 (Version None)
Quarter: 2007Q1

REPORT INFORMATION
  Report Type: 
  Country: None (occurrence: None)
  Receive Date: 20070201
  Receipt Date: 20070126
  Transmission Date: 20070707
  Serious: Yes (Hospitalization, Other)
  Sender: FDA-Public Use
  Company Number: US-BRISTOL-MYERS SQUIBB COMPANY-13659594

PATIENT
  Age: 37 Year
  Sex: Female
  Weight: 137 kg

DRUGS (9)
  1. DEFINITY [Suspect]
  2. KLOR-CON [Concomitant]
  3. LASIX [Concomitant]
  4. QUINAPRIL [Concomitant]
  5. METOPROLOL TARTRATE [Concomitant]
  6. WARFARIN SODIUM [Concomitant]
  7. CIPRO [Concomitant]
  8. ISOSORBIDE [Concomitant]
  9. PROZAC [Concomitant]

REACTIONS (2)
  - GRAND MAL CONVULSION [None]
  - RESPIRATORY ARREST [None]
